FAERS Safety Report 10065126 (Version 1)
Quarter: 2014Q2

REPORT INFORMATION
  Report Type: Spontaneous
  Country: IT (occurrence: IT)
  Receive Date: 20140408
  Receipt Date: 20140408
  Transmission Date: 20141212
  Serious: Yes (Other)
  Sender: FDA-Public Use
  Company Number: PHHY2014IT037917

PATIENT
  Age: 67 Year
  Sex: Female

DRUGS (1)
  1. ENOXAPARIN [Suspect]
     Dosage: 6000 IU, BID
     Route: 058

REACTIONS (5)
  - Shock haemorrhagic [Unknown]
  - Vascular pseudoaneurysm [Recovered/Resolved]
  - Anaemia [Unknown]
  - Haematoma [Recovered/Resolved]
  - Haemorrhage [Recovered/Resolved]
